FAERS Safety Report 5087072-9 (Version None)
Quarter: 2006Q3

REPORT INFORMATION
  Report Type: 
  Country: None (occurrence: None)
  Receive Date: 20060821
  Receipt Date: 20060809
  Transmission Date: 20061208
  Serious: Yes (Hospitalization, Other)
  Sender: FDA-Public Use
  Company Number: 2006097811

PATIENT
  Age: 30 Year
  Sex: Male

DRUGS (1)
  1. HYDROCORTISONE ACETATE [Suspect]
     Indication: ADRENAL CORTICAL INSUFFICIENCY
     Dosage: 40 MG, ORAL
     Route: 048

REACTIONS (3)
  - AORTIC ANEURYSM [None]
  - AORTIC THROMBOSIS [None]
  - CHEST PAIN [None]
